FAERS Safety Report 8899405 (Version 1)
Quarter: 2012Q4

REPORT INFORMATION
  Report Type: 
  Country: US (occurrence: US)
  Receive Date: 20121108
  Receipt Date: 20121108
  Transmission Date: 20130627
  Serious: No
  Sender: FDA-Public Use
  Company Number: US-AMGEN-USASP2012026962

PATIENT
  Sex: Male
  Weight: 74.83 kg

DRUGS (13)
  1. ENBREL [Suspect]
     Indication: PRODUCT USED FOR UNKNOWN INDICATION
     Dosage: 50 mg, qwk
     Route: 058
     Dates: start: 2004
  2. ELAVIL                             /00002202/ [Concomitant]
  3. PREDNISONE [Concomitant]
     Dosage: 1 mg, UNK
  4. LEFLUNOMIDE [Concomitant]
     Dosage: 10 mg, UNK
  5. TAMSULOSIN [Concomitant]
     Dosage: 0.4 mg, UNK
  6. FAMOTIDINE [Concomitant]
     Dosage: 10 mg, UNK
  7. METOPROLOL [Concomitant]
     Dosage: 25 mg, UNK
  8. CRESTOR [Concomitant]
     Dosage: 20 mg, UNK
  9. NIACIN [Concomitant]
     Dosage: 125 mg, UNK
  10. MIRALAX                            /00754501/ [Concomitant]
  11. IMODIUM [Concomitant]
  12. LEVOXYL [Concomitant]
     Dosage: 25 mug, UNK
  13. BABY ASPIRIN [Concomitant]
     Dosage: 81 mg, UNK

REACTIONS (6)
  - Constipation [Recovered/Resolved]
  - Fatigue [Unknown]
  - Asthenia [Unknown]
  - Muscle atrophy [Unknown]
  - Pain [Unknown]
  - Diarrhoea [Recovered/Resolved]
